FAERS Safety Report 6111574-7 (Version None)
Quarter: 2009Q1

REPORT INFORMATION
  Report Type: 
  Country: None (occurrence: None)
  Receive Date: 20090309
  Receipt Date: 20090226
  Transmission Date: 20090719
  Serious: Yes (Hospitalization)
  Sender: FDA-Public Use
  Company Number: 204189

PATIENT
  Age: 70 Year
  Sex: Female
  Weight: 70 kg

DRUGS (9)
  1. LEUCOVORIN CALCIUM [Suspect]
     Indication: COLORECTAL CANCER
     Dosage: 730 MG, 1 IN 2 WK,
     Dates: start: 20090123, end: 20090123
  2. FLUOROURACIL INJ [Suspect]
     Dosage: 755 MG, 1 IN 2 WK, INTRAVENOUS; 4445 MG, 1 IN 2 WK, INTRAVENOUS
     Route: 042
     Dates: start: 20090123, end: 20090123
  3. FLUOROURACIL INJ [Suspect]
     Dosage: 755 MG, 1 IN 2 WK, INTRAVENOUS; 4445 MG, 1 IN 2 WK, INTRAVENOUS
     Route: 042
     Dates: start: 20090123, end: 20090123
  4. CAMPTO /01280202/ [Suspect]
     Indication: COLORECTAL CANCER
     Dosage: 332 MG, 1 IN 2 WK, INTRAVENOUS
     Route: 042
     Dates: start: 20090123, end: 20090123
  5. SUNITINIB [Suspect]
     Indication: COLORECTAL CANCER
     Dosage: 37.5 MG ORAL
     Route: 048
     Dates: start: 20090122, end: 20090202
  6. LERCANIDIPINE [Concomitant]
  7. INDAPAMIDE [Concomitant]
  8. ISOSORBIDE DINITRATE [Concomitant]
  9. AMIODARONE HCL [Concomitant]

REACTIONS (10)
  - BLOOD GLUCOSE INCREASED [None]
  - DIARRHOEA [None]
  - EATING DISORDER [None]
  - FATIGUE [None]
  - HYPOKALAEMIA [None]
  - HYPONATRAEMIA [None]
  - HYPOTENSION [None]
  - NAUSEA [None]
  - NEUTROPENIA [None]
  - VOMITING [None]
